FAERS Safety Report 5531360-6 (Version None)
Quarter: 2007Q4

REPORT INFORMATION
  Report Type: 
  Country: None (occurrence: None)
  Receive Date: 20071127
  Receipt Date: 20071113
  Transmission Date: 20080405
  Serious: Yes (Other)
  Sender: FDA-Public Use
  Company Number: TUK2007A00130

PATIENT
  Age: 52 Year
  Sex: Female

DRUGS (12)
  1. PIOGLITAZONE HCL [Suspect]
     Dosage: 30 MG, 45 MG
     Dates: start: 20070918, end: 20071016
  2. PIOGLITAZONE HCL [Suspect]
     Dosage: 30 MG, 45 MG
     Dates: start: 20071016, end: 20071029
  3. ROSUVASTATIN (ROSUVASTATIN) [Concomitant]
  4. CODEINE PHOSPHATE AND ACETAMINOPHEN [Concomitant]
  5. TEMAZEPAM [Concomitant]
  6. GLUCAGON [Concomitant]
  7. GLUCAGON (GLUCAGON HYDROCHLORIDE) [Concomitant]
  8. NOVOMIX 30 (INSULIN ASPART, PROTAMINE INSULIN ASPART) [Concomitant]
  9. LISINOPRIL [Concomitant]
  10. LEVOTHYROXINE SODIUM [Concomitant]
  11. BENDROFLUMETHIAZIDE (BENDROFLUMETHIAZIDE) [Concomitant]
  12. PIZOTIFEN (PIZOTIFEN) [Concomitant]

REACTIONS (4)
  - BLOOD CORTISOL DECREASED [None]
  - CUSHINGOID [None]
  - FLUID RETENTION [None]
  - HYPOGLYCAEMIA [None]
